FAERS Safety Report 21008259 (Version 1)
Quarter: 2022Q2

REPORT INFORMATION
  Report Type: Spontaneous
  Country: US (occurrence: US)
  Receive Date: 20220627
  Receipt Date: 20220627
  Transmission Date: 20220721
  Serious: No
  Sender: FDA-Public Use
  Company Number: US-BIOGEN-2022BI01125668

PATIENT
  Age: 43 Year
  Sex: Male

DRUGS (14)
  1. VUMERITY [Suspect]
     Active Substance: DIROXIMEL FUMARATE
     Indication: Multiple sclerosis
     Dosage: TAKE 2 CAPSULES (462MG) BY MOUTH TWICE DAILY.
     Route: 065
  2. ZINC [Concomitant]
     Active Substance: ZINC
  3. VITAMIN D3 [Concomitant]
     Active Substance: CHOLECALCIFEROL
  4. VITAMIN C [Concomitant]
     Active Substance: ASCORBIC ACID
  5. OLEA EUROPAEA LEAF [Concomitant]
     Active Substance: OLEA EUROPAEA LEAF
  6. COPPER [Concomitant]
     Active Substance: COPPER
  7. ASTRAGALUS [Concomitant]
  8. VITAMIN A [Concomitant]
     Active Substance: VITAMIN A
  9. MAGNESIUM CITRATE [Concomitant]
     Active Substance: MAGNESIUM CITRATE
  10. BIOTIN [Concomitant]
     Active Substance: BIOTIN
  11. CITRIC ACID [Concomitant]
     Active Substance: CITRIC ACID MONOHYDRATE
  12. IRON [Concomitant]
     Active Substance: IRON
  13. TESTOSTERONE [Concomitant]
     Active Substance: TESTOSTERONE
  14. CALCIUM CITRATE [Concomitant]
     Active Substance: CALCIUM CITRATE

REACTIONS (7)
  - Product dose omission in error [Recovered/Resolved]
  - Loss of control of legs [Unknown]
  - Arthralgia [Unknown]
  - Head discomfort [Unknown]
  - Facial pain [Unknown]
  - Feeling hot [Unknown]
  - Abdominal pain upper [Recovered/Resolved]

NARRATIVE: CASE EVENT DATE: 20220328
